FAERS Safety Report 24729160 (Version 3)
Quarter: 2025Q1

REPORT INFORMATION
  Report Type: Report from Study
  Country: DE (occurrence: DE)
  Receive Date: 20241213
  Receipt Date: 20250205
  Transmission Date: 20250408
  Serious: Yes (Hospitalization)
  Sender: TAKEDA
  Company Number: DE-TAKEDA-2024TUS100523

PATIENT
  Age: 85 Year
  Sex: Female

DRUGS (10)
  1. TEDUGLUTIDE [Suspect]
     Active Substance: TEDUGLUTIDE
     Indication: Short-bowel syndrome
     Dosage: 2.8 MILLIGRAM, QD
     Dates: start: 20210213
  2. TEDUGLUTIDE [Suspect]
     Active Substance: TEDUGLUTIDE
  3. TEDUGLUTIDE [Suspect]
     Active Substance: TEDUGLUTIDE
  4. TEDUGLUTIDE [Suspect]
     Active Substance: TEDUGLUTIDE
  5. INNOHEP [Concomitant]
     Active Substance: TINZAPARIN SODIUM
     Dosage: 120 INTERNATIONAL UNIT, QD
     Dates: start: 20240925
  6. DROPIZOL [Concomitant]
     Dosage: 10 GTT DROPS, BID
     Dates: start: 20240925
  7. OPIUM TINCTURE [Concomitant]
     Active Substance: MORPHINE
     Dosage: 19 GTT DROPS, BID
     Dates: start: 20220914, end: 20240924
  8. ZOPICLONE [Concomitant]
     Active Substance: ZOPICLONE
     Dosage: 3.75 MILLIGRAM, QD
     Dates: start: 20220914
  9. VITAMIN E [Concomitant]
     Active Substance: .ALPHA.-TOCOPHEROL
     Dosage: UNK UNK, Q4WEEKS
     Dates: start: 2020, end: 20220913
  10. VITAMIN D [Concomitant]
     Active Substance: VITAMIN D NOS
     Dosage: UNK, Q4WEEKS
     Dates: start: 2020, end: 20220913

REACTIONS (3)
  - Jugular vein thrombosis [Recovered/Resolved]
  - Device dislocation [Recovered/Resolved]
  - Weight decreased [Recovered/Resolved]

NARRATIVE: CASE EVENT DATE: 20220914
